FAERS Safety Report 9216307 (Version 1)
Quarter: 2013Q2

REPORT INFORMATION
  Report Type: Spontaneous
  Country: FR (occurrence: None)
  Receive Date: 20130404
  Receipt Date: 20130404
  Transmission Date: 20140414
  Serious: Yes (Other)
  Sender: FDA-Public Use
  Company Number: 2013/076

PATIENT
  Age: 15 Year
  Sex: Female

DRUGS (5)
  1. LEVOFLOXACIN [Suspect]
     Indication: TUBERCULOSIS
     Dosage: 14 MG/KG/DAY
  2. PYRAZINAMIDE [Concomitant]
  3. ETHAMBUTOL [Concomitant]
  4. AMIKACIN [Concomitant]
  5. PARA-AMINO SALICYLIC ACID [Concomitant]

REACTIONS (2)
  - Polyarthritis [None]
  - Drug intolerance [None]
